FAERS Safety Report 8887225 (Version 3)
Quarter: 2013Q1

REPORT INFORMATION
  Report Type: Report from Study
  Country: DE (occurrence: DE)
  Receive Date: 20121101
  Receipt Date: 20130204
  Transmission Date: 20140127
  Serious: Yes (Other)
  Sender: FDA-Public Use
  Company Number: DE-ROCHE-1151566

PATIENT
  Sex: 0

DRUGS (6)
  1. RANIBIZUMAB [Suspect]
     Indication: AGE-RELATED MACULAR DEGENERATION
     Route: 050
     Dates: start: 20110321
  2. RANIBIZUMAB [Suspect]
     Route: 050
     Dates: start: 20110504
  3. RANIBIZUMAB [Suspect]
     Route: 050
     Dates: start: 201107
  4. RANIBIZUMAB [Suspect]
     Route: 050
     Dates: start: 201108
  5. RANIBIZUMAB [Suspect]
     Route: 050
     Dates: start: 201109
  6. RANIBIZUMAB [Suspect]
     Route: 050
     Dates: start: 20110214

REACTIONS (4)
  - Macular degeneration [Unknown]
  - Infection [Recovered/Resolved]
  - Ocular neoplasm [Unknown]
  - Retinal haemorrhage [Unknown]
